FAERS Safety Report 23366169 (Version 2)
Quarter: 2024Q1

REPORT INFORMATION
  Report Type: Spontaneous
  Country: US (occurrence: US)
  Receive Date: 20240104
  Receipt Date: 20240122
  Transmission Date: 20240409
  Serious: No
  Sender: FDA-Public Use
  Company Number: US-BAYER-2023A186350

PATIENT
  Age: 32 Year

DRUGS (1)
  1. GADAVIST [Suspect]
     Active Substance: GADOBUTROL
     Indication: Magnetic resonance imaging
     Dosage: UNK UNK, ONCE
     Dates: start: 20231216, end: 20231216

REACTIONS (3)
  - Nausea [Recovered/Resolved]
  - Vomiting projectile [Recovered/Resolved]
  - Suspected product quality issue [None]

NARRATIVE: CASE EVENT DATE: 20231216
